FAERS Safety Report 11589953 (Version 1)
Quarter: 2015Q4

REPORT INFORMATION
  Report Type: Spontaneous
  Country: US (occurrence: US)
  Receive Date: 20151002
  Receipt Date: 20151002
  Transmission Date: 20160304
  Serious: No
  Sender: FDA-Public Use
  Company Number: US-UPSHER-SMITH LABORATORIES, INC.-15002249

PATIENT
  Age: 25 Year
  Sex: Female

DRUGS (4)
  1. QUDEXY XR [Suspect]
     Active Substance: TOPIRAMATE
     Dosage: 50 MG, BID
     Route: 048
     Dates: start: 201505, end: 201506
  2. QUDEXY XR [Suspect]
     Active Substance: TOPIRAMATE
     Indication: MIGRAINE PROPHYLAXIS
     Dosage: 25 MG, QD
     Route: 048
     Dates: start: 201507
  3. QUDEXY XR [Suspect]
     Active Substance: TOPIRAMATE
     Dosage: 25 MG, BID
     Route: 048
     Dates: start: 201506, end: 201507
  4. WELLBUTRIN [Concomitant]
     Active Substance: BUPROPION HYDROCHLORIDE
     Indication: DEPRESSION
     Dosage: UNK

REACTIONS (4)
  - Memory impairment [Recovering/Resolving]
  - Depression [Recovering/Resolving]
  - Vision blurred [Recovering/Resolving]
  - Confusional state [Recovering/Resolving]

NARRATIVE: CASE EVENT DATE: 201506
